FAERS Safety Report 10064809 (Version 1)
Quarter: 2014Q1

REPORT INFORMATION
  Report Type: Spontaneous
  Country: US (occurrence: None)
  Receive Date: 20140328
  Receipt Date: 20140328
  Transmission Date: 20141002
  Serious: No
  Sender: FDA-Public Use
  Company Number: 1000054301

PATIENT
  Sex: Male

DRUGS (7)
  1. LINZESS [Suspect]
     Route: 048
     Dates: start: 20140210
  2. POTASSIUM (POTASSIUM) [Concomitant]
  3. TAMSULOSIN (TAMSULOSIN) [Concomitant]
  4. THEOPHYLLINE ER (THEOPHYLLINE ER) [Concomitant]
  5. LORAZEPAM (LORAZEPAM) [Concomitant]
  6. GAS X (SIMETHICONE) (SIMETHICONE) [Concomitant]
  7. PRILOSEC (OMEPRAZOLE) (OMEPRAZOLE) [Concomitant]

REACTIONS (1)
  - Diarrhoea [None]
